FAERS Safety Report 25428761 (Version 1)
Quarter: 2025Q2

REPORT INFORMATION
  Report Type: Spontaneous
  Country: US (occurrence: None)
  Receive Date: 20250611
  Receipt Date: 20250611
  Transmission Date: 20250717
  Serious: Yes (unspecified)
  Sender: FDA-CTU
  Company Number: None

PATIENT
  Age: 70 Year
  Sex: Male
  Weight: 92.7 kg

DRUGS (1)
  1. KISUNLA [Suspect]
     Active Substance: DONANEMAB-AZBT
     Indication: Dementia Alzheimer^s type
     Route: 041
     Dates: start: 20241024, end: 20250611

REACTIONS (11)
  - Infusion related reaction [None]
  - Dyspnoea [None]
  - Erythema [None]
  - Flushing [None]
  - Blood pressure increased [None]
  - Pallor [None]
  - Syncope [None]
  - Tremor [None]
  - Dizziness [None]
  - Feeling abnormal [None]
  - Brain fog [None]

NARRATIVE: CASE EVENT DATE: 20250611
